FAERS Safety Report 8947299 (Version 1)
Quarter: 2012Q4

REPORT INFORMATION
  Report Type: 
  Country: GB (occurrence: GB)
  Receive Date: 20121205
  Receipt Date: 20121205
  Transmission Date: 20130627
  Serious: Yes (Other)
  Sender: FDA-Public Use
  Company Number: GB-ELI_LILLY_AND_COMPANY-GB201211007148

PATIENT
  Sex: Female
  Weight: 65 kg

DRUGS (3)
  1. CYMBALTA [Suspect]
     Indication: DEPRESSION
     Dosage: 30 mg, UNK
     Route: 048
     Dates: start: 20120910
  2. HYDROXYZINE [Concomitant]
     Dosage: 25 mg, UNK
     Route: 048
  3. PREGABALIN [Concomitant]
     Dosage: 75 mg, UNK
     Route: 048

REACTIONS (2)
  - Stevens-Johnson syndrome [Recovering/Resolving]
  - Hyperhidrosis [Unknown]
